FAERS Safety Report 14372119 (Version 1)
Quarter: 2018Q1

REPORT INFORMATION
  Report Type: Spontaneous
  Country: US (occurrence: US)
  Receive Date: 20180110
  Receipt Date: 20180110
  Transmission Date: 20180509
  Serious: Yes (Death)
  Sender: FDA-Public Use
  Company Number: US-SA-2018SA004007

PATIENT
  Age: 41 Year
  Sex: Male

DRUGS (13)
  1. QUETIAPINE. [Concomitant]
     Active Substance: QUETIAPINE
  2. DIPHENHYDRAMINE. [Suspect]
     Active Substance: DIPHENHYDRAMINE
     Route: 065
  3. GABAPENTIN. [Concomitant]
     Active Substance: GABAPENTIN
  4. FENTANYL. [Suspect]
     Active Substance: FENTANYL
     Route: 065
  5. CARFENTANIL CITRATE [Suspect]
     Active Substance: CARFENTANIL CITRATE
     Route: 065
  6. IBUPROFEN. [Concomitant]
     Active Substance: IBUPROFEN
  7. QUININE [Concomitant]
     Active Substance: QUININE
  8. COCAINE [Suspect]
     Active Substance: COCAINE
     Route: 065
  9. NALOXONE [Concomitant]
     Active Substance: NALOXONE
  10. HEROIN [Suspect]
     Active Substance: DIAMORPHINE
     Route: 065
  11. MORPHINE [Concomitant]
     Active Substance: MORPHINE
  12. CODEINE [Concomitant]
     Active Substance: CODEINE
  13. ATROPINE. [Concomitant]
     Active Substance: ATROPINE

REACTIONS (2)
  - Unresponsive to stimuli [None]
  - Toxicity to various agents [Fatal]
